FAERS Safety Report 6204209-6 (Version None)
Quarter: 2009Q2

REPORT INFORMATION
  Report Type: 
  Country: None (occurrence: None)
  Receive Date: 20090526
  Receipt Date: 20090526
  Transmission Date: 20091009
  Serious: Yes (Hospitalization)
  Sender: FDA-Public Use
  Company Number: None

PATIENT
  Age: 13 Year
  Sex: Female
  Weight: 43.0917 kg

DRUGS (1)
  1. STRATTERA [Suspect]
     Indication: ATTENTION DEFICIT/HYPERACTIVITY DISORDER
     Dosage: ONE EACH NIGHT PO
     Route: 048
     Dates: start: 20080820, end: 20090508

REACTIONS (3)
  - HEPATIC ENZYME INCREASED [None]
  - OVERDOSE [None]
  - SUICIDE ATTEMPT [None]
